FAERS Safety Report 6280507-5 (Version None)
Quarter: 2009Q3

REPORT INFORMATION
  Report Type: 
  Country: None (occurrence: None)
  Receive Date: 20090724
  Receipt Date: 20080814
  Transmission Date: 20100115
  Serious: No
  Sender: FDA-Public Use
  Company Number: A0742850A

PATIENT
  Age: 64 Year
  Sex: Male

DRUGS (4)
  1. AVANDIA [Suspect]
     Dosage: 2MG TWICE PER DAY
     Route: 048
     Dates: start: 19990801
  2. LASIX [Concomitant]
  3. POTASSIUM CHLORIDE [Concomitant]
  4. IRON [Concomitant]

REACTIONS (1)
  - OEDEMA PERIPHERAL [None]
